FAERS Safety Report 7299320-5 (Version None)
Quarter: 2011Q1

REPORT INFORMATION
  Report Type: 
  Country: None (occurrence: None)
  Receive Date: 20110217
  Receipt Date: 20110214
  Transmission Date: 20110831
  Serious: Yes (Hospitalization, Congenital Anomaly)
  Sender: FDA-Public Use
  Company Number: A0838790A

PATIENT
  Sex: Female
  Weight: 2.5 kg

DRUGS (4)
  1. PAXIL CR [Suspect]
     Indication: ANXIETY
     Dosage: 25MG PER DAY
     Route: 064
     Dates: start: 20030101, end: 20030821
  2. AMOXICILLIN [Concomitant]
     Route: 064
     Dates: start: 20030801
  3. ZITHROMAX [Concomitant]
     Route: 064
     Dates: start: 20030801
  4. PRENATAL VITAMINS [Concomitant]
     Route: 064

REACTIONS (6)
  - ATRIAL SEPTAL DEFECT [None]
  - PULMONARY ARTERY STENOSIS CONGENITAL [None]
  - CARDIAC MURMUR [None]
  - PULMONARY VALVE STENOSIS [None]
  - DRUG EXPOSURE DURING PREGNANCY [None]
  - FACTOR V LEIDEN MUTATION [None]
